FAERS Safety Report 9898455 (Version 1)
Quarter: 2014Q1

REPORT INFORMATION
  Report Type: Spontaneous
  Country: CL (occurrence: CL)
  Receive Date: 20140214
  Receipt Date: 20140214
  Transmission Date: 20141002
  Serious: Yes (Other)
  Sender: FDA-Public Use
  Company Number: CL-PFIZER INC-2014039973

PATIENT
  Sex: Male

DRUGS (1)
  1. ALTRULINE [Suspect]
     Route: 048

REACTIONS (1)
  - Laryngeal cancer [Not Recovered/Not Resolved]
